FAERS Safety Report 12458807 (Version 2)
Quarter: 2016Q3

REPORT INFORMATION
  Report Type: Spontaneous
  Country: TN (occurrence: TN)
  Receive Date: 20160613
  Receipt Date: 20160702
  Transmission Date: 20161109
  Serious: Yes (Death, Hospitalization, Other)
  Sender: FDA-Public Use
  Company Number: TN-ACCORD-041454

PATIENT
  Age: 32 Year
  Sex: Female

DRUGS (1)
  1. METHOTREXATE. [Suspect]
     Active Substance: METHOTREXATE
     Indication: ECTOPIC PREGNANCY
     Dosage: ONE DOSE
     Route: 030
     Dates: start: 20130303

REACTIONS (13)
  - Erythema [Unknown]
  - Pyrexia [Unknown]
  - Skin hyperpigmentation [Unknown]
  - Renal failure [Unknown]
  - Dysphagia [Unknown]
  - Diarrhoea haemorrhagic [Unknown]
  - Hepatocellular injury [Not Recovered/Not Resolved]
  - Septic shock [Fatal]
  - Mucosal inflammation [Unknown]
  - Skin lesion [Unknown]
  - Bone marrow failure [Not Recovered/Not Resolved]
  - Cholestasis [Unknown]
  - Odynophagia [Unknown]

NARRATIVE: CASE EVENT DATE: 201303
